FAERS Safety Report 4959817-7 (Version None)
Quarter: 2006Q1

REPORT INFORMATION
  Report Type: 
  Country: None (occurrence: None)
  Receive Date: 20060327
  Receipt Date: 20060309
  Transmission Date: 20060701
  Serious: Yes (Hospitalization)
  Sender: FDA-Public Use
  Company Number: 8011385

PATIENT
  Age: 34 Year
  Sex: Male
  Weight: 87.5 kg

DRUGS (5)
  1. KEPPRA [Suspect]
     Indication: PARTIAL SEIZURES
     Dosage: PO
     Route: 048
     Dates: start: 20040101
  2. KEPPRA [Suspect]
     Indication: PARTIAL SEIZURES
     Dosage: 1500 MG 2/D PO
     Route: 048
  3. KEPPRA [Suspect]
     Indication: PARTIAL SEIZURES
     Dosage: 1175 MG 2/D PO
     Route: 048
  4. HERBAL SUPPLEMENT WHICH DID NOT CONTAIN EPHEDRINE [Concomitant]
  5. PRILOSEC [Concomitant]

REACTIONS (14)
  - ACTIVATED PARTIAL THROMBOPLASTIN TIME PROLONGED [None]
  - ANAEMIA OF CHRONIC DISEASE [None]
  - ANTINUCLEAR ANTIBODY POSITIVE [None]
  - BLOOD FIBRINOGEN INCREASED [None]
  - FIBRIN D DIMER INCREASED [None]
  - HYPERCOAGULATION [None]
  - LOBAR PNEUMONIA [None]
  - PLATELET COUNT INCREASED [None]
  - PLEURAL EFFUSION [None]
  - PNEUMONIA ASPIRATION [None]
  - PRIAPISM [None]
  - PROCEDURAL COMPLICATION [None]
  - PULMONARY EMBOLISM [None]
  - THERAPY NON-RESPONDER [None]
